FAERS Safety Report 4641680-5 (Version None)
Quarter: 2005Q2

REPORT INFORMATION
  Report Type: 
  Country: None (occurrence: None)
  Receive Date: 20050421
  Receipt Date: 20050412
  Transmission Date: 20051028
  Serious: Yes (Life-Threatening)
  Sender: FDA-Public Use
  Company Number: 163-20785-05010335

PATIENT
  Age: 45 Year
  Sex: Male

DRUGS (6)
  1. THALOMID [Suspect]
     Indication: KAPOSI'S SARCOMA
     Dosage: 200 MG, DAILY, ORAL
     Route: 048
     Dates: start: 20041110, end: 20050101
  2. VALGANCICLOVIR (VALGANCICLOVIR) [Suspect]
     Indication: DRUG USE FOR UNKNOWN INDICATION
  3. TENOFOVIR (TENOFOVIR) [Suspect]
     Indication: DRUG USE FOR UNKNOWN INDICATION
  4. ATAZANAVIR (ATAZANAVIR) [Concomitant]
  5. COMBIVIR (ZIDOVUDINE W/LMIVUDINE) [Concomitant]
  6. NORVIR [Concomitant]

REACTIONS (2)
  - DRUG INTERACTION [None]
  - PANCYTOPENIA [None]
